FAERS Safety Report 5895702-4 (Version None)
Quarter: 2008Q3

REPORT INFORMATION
  Report Type: 
  Country: None (occurrence: None)
  Receive Date: 20080924
  Receipt Date: 20080514
  Transmission Date: 20090109
  Serious: No
  Sender: FDA-Public Use
  Company Number: US-BAYER-200823360NA

PATIENT
  Age: 15 Year
  Sex: Female

DRUGS (1)
  1. YASMIN [Suspect]
     Indication: ENDOMETRIOSIS
     Route: 048
     Dates: start: 20080101

REACTIONS (6)
  - DIZZINESS [None]
  - FATIGUE [None]
  - FEELING HOT [None]
  - NAUSEA [None]
  - NO ADVERSE EVENT [None]
  - PERIPHERAL COLDNESS [None]
